FAERS Safety Report 5086275-7 (Version None)
Quarter: 2006Q3

REPORT INFORMATION
  Report Type: 
  Country: None (occurrence: None)
  Receive Date: 20060821
  Receipt Date: 20060821
  Transmission Date: 20061208
  Serious: Yes (Life-Threatening, Hospitalization)
  Sender: FDA-Public Use
  Company Number: None

PATIENT
  Age: 3 Year
  Sex: Female
  Weight: 15 kg

DRUGS (1)
  1. TYLENOL (CAPLET) [Suspect]

REACTIONS (4)
  - ACCIDENTAL DRUG INTAKE BY CHILD [None]
  - LUNG DISORDER [None]
  - MEDICATION ERROR [None]
  - PNEUMONIA ASPIRATION [None]
